FAERS Safety Report 7702877-0 (Version None)
Quarter: 2011Q3

REPORT INFORMATION
  Report Type: 
  Country: None (occurrence: None)
  Receive Date: 20110823
  Receipt Date: 20110809
  Transmission Date: 20111222
  Serious: Yes (Other)
  Sender: FDA-Public Use
  Company Number: JP-ASTRAZENECA-2011SE22751

PATIENT
  Age: 8 Year
  Sex: Male

DRUGS (8)
  1. POLARAMINE [Suspect]
     Route: 048
     Dates: start: 20101204
  2. VINCRISTINE SULFATE [Concomitant]
     Indication: NEUROBLASTOMA
     Dates: start: 20101106
  3. MUCODYNE [Suspect]
     Route: 048
     Dates: start: 20101204
  4. CYCLOPHOSPHAMIDE [Concomitant]
     Indication: NEUROBLASTOMA
     Dates: start: 20101106
  5. THP-ADRIAMYCIN [Concomitant]
     Indication: NEUROBLASTOMA
     Dates: start: 20101106
  6. MEROPENEM [Suspect]
     Indication: FEBRILE NEUTROPENIA
     Route: 042
     Dates: start: 20101201, end: 20101213
  7. FUNGUARD [Concomitant]
     Dates: start: 20101201, end: 20101213
  8. CISPLATIN [Concomitant]
     Indication: NEUROBLASTOMA
     Dates: start: 20101106

REACTIONS (1)
  - ANAPHYLACTIC REACTION [None]
